FAERS Safety Report 9474827 (Version 2)
Quarter: 2013Q3

REPORT INFORMATION
  Report Type: Spontaneous
  Country: IT (occurrence: IT)
  Receive Date: 20130823
  Receipt Date: 20130823
  Transmission Date: 20140515
  Serious: Yes (Hospitalization)
  Sender: FDA-Public Use
  Company Number: PHHY2013IT073859

PATIENT
  Sex: Female

DRUGS (4)
  1. BISOPROLOL [Suspect]
     Indication: DRUG ABUSE
     Dosage: 8.75 MG, ONCE/SINGLE
     Route: 048
     Dates: start: 20130608, end: 20130608
  2. LASIX [Suspect]
     Indication: DRUG ABUSE
     Dosage: 500 MG, ONCE/SINGLE
     Route: 048
     Dates: start: 20130608, end: 20130608
  3. SYNFLEX [Suspect]
     Indication: DRUG ABUSE
     Dosage: 2750 MG, ONCE/SINGLE
     Route: 048
     Dates: start: 20130608, end: 20130608
  4. NITROFURANTOIN [Suspect]
     Indication: DRUG ABUSE
     Dosage: 1000 MG, ONCE/SINGLE
     Route: 048
     Dates: start: 20130608, end: 20130608

REACTIONS (2)
  - Drug abuse [Recovered/Resolved]
  - Nausea [Recovered/Resolved]
